FAERS Safety Report 5553544-3 (Version None)
Quarter: 2007Q4

REPORT INFORMATION
  Report Type: 
  Country: None (occurrence: None)
  Receive Date: 20071213
  Receipt Date: 20071203
  Transmission Date: 20080405
  Serious: Yes (Other)
  Sender: FDA-Public Use
  Company Number: GB-JNJFOC-20071201864

PATIENT
  Age: 5 Year
  Sex: Female

DRUGS (1)
  1. MEBENDAZOLE [Suspect]
     Indication: ENTEROBIASIS
     Route: 048

REACTIONS (3)
  - ERYTHEMA [None]
  - OEDEMA PERIPHERAL [None]
  - VAGINAL SWELLING [None]
